FAERS Safety Report 16157308 (Version 1)
Quarter: 2019Q2

REPORT INFORMATION
  Report Type: Spontaneous
  Country: US (occurrence: US)
  Receive Date: 20190403
  Receipt Date: 20190403
  Transmission Date: 20190711
  Serious: Yes (Other)
  Sender: FDA-Public Use
  Company Number: None

PATIENT
  Age: 42 Year
  Sex: Male
  Weight: 102.6 kg

DRUGS (9)
  1. ENOXAPARIN [Concomitant]
     Active Substance: ENOXAPARIN
  2. NORCO [Concomitant]
     Active Substance: ACETAMINOPHEN\HYDROCODONE BITARTRATE
  3. CAPECITABINE. [Suspect]
     Active Substance: CAPECITABINE
     Indication: GASTRIC CANCER
     Route: 049
     Dates: start: 20190129
  4. MEGESTROL ACETATE. [Concomitant]
     Active Substance: MEGESTROL ACETATE
  5. DOXEPIN [Concomitant]
     Active Substance: DOXEPIN
  6. LISINOPRIL. [Concomitant]
     Active Substance: LISINOPRIL
  7. MULTIVITAMIN [Concomitant]
     Active Substance: VITAMINS
  8. OMEPRAZOLE. [Concomitant]
     Active Substance: OMEPRAZOLE
  9. NICODERM CQ [Concomitant]
     Active Substance: NICOTINE

REACTIONS (1)
  - Decreased appetite [None]
